FAERS Safety Report 5653991-5 (Version None)
Quarter: 2008Q1

REPORT INFORMATION
  Report Type: 
  Country: None (occurrence: None)
  Receive Date: 20080306
  Receipt Date: 20061016
  Transmission Date: 20080703
  Serious: No
  Sender: FDA-Public Use
  Company Number: FR-BAXTER-2006BH014121

PATIENT
  Age: 50 Year
  Sex: Female

DRUGS (1)
  1. EXTRANEAL [Suspect]
     Indication: PERITONEAL DIALYSIS
     Dosage: DOSE UNIT:UNKNOWN
     Route: 065

REACTIONS (2)
  - DEVICE INTERACTION [None]
  - HYPOGLYCAEMIC COMA [None]
